FAERS Safety Report 7084175-4 (Version None)
Quarter: 2010Q4

REPORT INFORMATION
  Report Type: 
  Country: None (occurrence: None)
  Receive Date: 20101104
  Receipt Date: 20100309
  Transmission Date: 20110411
  Serious: Yes (Death, Other)
  Sender: FDA-Public Use
  Company Number: US-BAYER-201038723NA

PATIENT
  Age: 64 Year
  Sex: Male

DRUGS (1)
  1. TRASYLOL [Suspect]
     Indication: PRODUCT USED FOR UNKNOWN INDICATION
     Route: 042
     Dates: start: 20041217

REACTIONS (12)
  - ANXIETY [None]
  - EMOTIONAL DISTRESS [None]
  - FEAR [None]
  - HEPATIC FAILURE [None]
  - INJURY [None]
  - MULTI-ORGAN FAILURE [None]
  - PAIN [None]
  - RENAL FAILURE [None]
  - RENAL IMPAIRMENT [None]
  - RENAL INJURY [None]
  - STRESS [None]
  - UNEVALUABLE EVENT [None]
